FAERS Safety Report 5057168-6 (Version None)
Quarter: 2006Q3

REPORT INFORMATION
  Report Type: 
  Country: None (occurrence: None)
  Receive Date: 20060721
  Receipt Date: 20030911
  Transmission Date: 20061208
  Serious: No
  Sender: FDA-Public Use
  Company Number: US-GLAXOSMITHKLINE-A0425518A

PATIENT
  Age: 79 Year
  Sex: Female

DRUGS (9)
  1. AVANDIA [Suspect]
     Dosage: 4MG PER DAY
     Route: 048
  2. NORVASC [Concomitant]
  3. PROPRANOLOL [Concomitant]
  4. GLUCOVANCE [Concomitant]
  5. ZESTRIL [Concomitant]
  6. LANOXIN [Concomitant]
  7. COUMADIN [Concomitant]
  8. INDERAL [Concomitant]
     Route: 065
  9. B12 [Concomitant]
     Route: 065

REACTIONS (4)
  - DYSPNOEA [None]
  - FATIGUE [None]
  - HYPERSOMNIA [None]
  - SWELLING [None]
